FAERS Safety Report 24296892 (Version 1)
Quarter: 2024Q3

REPORT INFORMATION
  Report Type: Spontaneous
  Country: US (occurrence: US)
  Receive Date: 20240909
  Receipt Date: 20240909
  Transmission Date: 20241017
  Serious: Yes (Other)
  Sender: SEBELA
  Company Number: US-SEBELA IRELAND LIMITED-2024SEB00063

PATIENT
  Sex: Female

DRUGS (18)
  1. IMURAN [Suspect]
     Active Substance: AZATHIOPRINE
     Indication: Rheumatoid arthritis
     Dosage: UNK
     Dates: start: 2014
  2. IMURAN [Suspect]
     Active Substance: AZATHIOPRINE
     Dosage: UNK
  3. OCREVUS [Suspect]
     Active Substance: OCRELIZUMAB
  4. ANASTROZOLE [Concomitant]
     Active Substance: ANASTROZOLE
  5. PROVIGIL [Concomitant]
     Active Substance: MODAFINIL
  6. SAVELLA [Concomitant]
     Active Substance: MILNACIPRAN HYDROCHLORIDE
  7. SERTRALINE [Concomitant]
     Active Substance: SERTRALINE HYDROCHLORIDE
  8. OXCARBAZEPINE [Concomitant]
     Active Substance: OXCARBAZEPINE
  9. METOPROLOL [Concomitant]
     Active Substance: METOPROLOL
  10. VITAMIN D NOS [Concomitant]
     Active Substance: CHOLECALCIFEROL\ERGOCALCIFEROL
  11. BENADRYL [Concomitant]
     Active Substance: DIPHENHYDRAMINE HYDROCHLORIDE
  12. MIRENA [Concomitant]
     Active Substance: LEVONORGESTREL
  13. ZYRTEC [Concomitant]
     Active Substance: CETIRIZINE HYDROCHLORIDE
  14. CLARITIN [Concomitant]
     Active Substance: LORATADINE
  15. TYLENOL [Concomitant]
     Active Substance: ACETAMINOPHEN
  16. IBUPROFEN [Concomitant]
     Active Substance: IBUPROFEN
  17. HERBALS\TETRAHYDROCANNABINOL UNSPECIFIED [Concomitant]
     Active Substance: HERBALS\TETRAHYDROCANNABINOL UNSPECIFIED
  18. ALBUTEROL [Concomitant]
     Active Substance: ALBUTEROL

REACTIONS (3)
  - Neoplasm malignant [Unknown]
  - Pneumonia [Recovered/Resolved]
  - Herpes zoster [Recovered/Resolved]
